FAERS Safety Report 11587944 (Version 3)
Quarter: 2016Q1

REPORT INFORMATION
  Report Type: Spontaneous
  Country: US (occurrence: US)
  Receive Date: 20151001
  Receipt Date: 20160219
  Transmission Date: 20160525
  Serious: No
  Sender: FDA-Public Use
  Company Number: US-APOTEX-2015AP010043

PATIENT
  Sex: Female

DRUGS (2)
  1. NICOTINE TRANSDERMAL SYSTEM [Suspect]
     Active Substance: NICOTINE
     Indication: SMOKING CESSATION THERAPY
     Route: 065
  2. NICOTINE. [Suspect]
     Active Substance: NICOTINE
     Indication: SMOKING CESSATION THERAPY

REACTIONS (3)
  - Nausea [Recovering/Resolving]
  - Malaise [Recovering/Resolving]
  - Dysgeusia [Recovering/Resolving]
